FAERS Safety Report 6189764-7 (Version None)
Quarter: 2009Q2

REPORT INFORMATION
  Report Type: 
  Country: None (occurrence: None)
  Receive Date: 20090514
  Receipt Date: 20090506
  Transmission Date: 20091009
  Serious: Yes (Hospitalization)
  Sender: FDA-Public Use
  Company Number: FR-JNJFOC-20090501940

PATIENT
  Sex: Female

DRUGS (7)
  1. DURAGESIC-100 [Suspect]
     Indication: ARTHRALGIA
     Route: 062
  2. LASIX [Concomitant]
     Indication: HYPERTENSION
  3. CARDENSIEL [Concomitant]
     Indication: CARDIAC FAILURE
     Route: 048
  4. ATACAND [Concomitant]
     Indication: HYPERTENSION
  5. EZETROL [Concomitant]
     Indication: HYPERCHOLESTEROLAEMIA
  6. DEROXAT [Concomitant]
     Indication: DEPRESSION
  7. FLUINDIONE [Concomitant]

REACTIONS (2)
  - ALTERED STATE OF CONSCIOUSNESS [None]
  - LOSS OF CONSCIOUSNESS [None]
